FAERS Safety Report 17490080 (Version 1)
Quarter: 2020Q1

REPORT INFORMATION
  Report Type: Spontaneous
  Country: US (occurrence: US)
  Receive Date: 20200303
  Receipt Date: 20200303
  Transmission Date: 20200409
  Serious: No
  Sender: FDA-Public Use
  Company Number: US-AKORN PHARMACEUTICALS-2019AKN01671

PATIENT
  Sex: Male
  Weight: 90.7 kg

DRUGS (2)
  1. MYORISAN [Suspect]
     Active Substance: ISOTRETINOIN
     Dosage: 80 MG, 1X/DAY
  2. MYORISAN [Suspect]
     Active Substance: ISOTRETINOIN
     Dosage: 40 MG, 1X/DAY

REACTIONS (4)
  - Therapeutic product effect increased [Unknown]
  - Lip swelling [Recovered/Resolved]
  - Unevaluable event [Recovered/Resolved]
  - Off label use [Unknown]
